FAERS Safety Report 8311866 (Version 4)
Quarter: 2013Q2

REPORT INFORMATION
  Report Type: Spontaneous
  Country: US (occurrence: US)
  Receive Date: 20111227
  Receipt Date: 20130513
  Transmission Date: 20140414
  Serious: Yes (Life-Threatening, Other)
  Sender: FDA-Public Use
  Company Number: US-ASTRAZENECA-2011SE77887

PATIENT
  Age: 41 Year
  Sex: Female
  Weight: 81.6 kg

DRUGS (15)
  1. SEROQUEL [Suspect]
     Indication: DEPRESSION
     Route: 048
     Dates: start: 20110728
  2. SEROQUEL [Interacting]
     Indication: MAJOR DEPRESSION
     Route: 048
     Dates: start: 20110728
  3. SEROQUEL [Interacting]
     Indication: DEPRESSION
     Route: 048
     Dates: start: 20110620, end: 20110728
  4. SEROQUEL [Interacting]
     Indication: MAJOR DEPRESSION
     Route: 048
     Dates: start: 20110620, end: 20110728
  5. SEROQUEL [Interacting]
     Indication: DEPRESSION
     Route: 048
     Dates: start: 200705, end: 201003
  6. SEROQUEL [Interacting]
     Indication: MAJOR DEPRESSION
     Route: 048
     Dates: start: 200705, end: 201003
  7. SEROQUEL [Interacting]
     Indication: DEPRESSION
     Route: 048
  8. SEROQUEL [Interacting]
     Indication: MAJOR DEPRESSION
     Route: 048
  9. PARNATE [Interacting]
     Indication: DEPRESSION
     Route: 048
     Dates: start: 20101230
  10. PARNATE [Interacting]
     Indication: MAJOR DEPRESSION
     Route: 048
     Dates: start: 20101230
  11. PARNATE [Interacting]
     Indication: DEPRESSION
     Route: 048
     Dates: start: 20110801
  12. PARNATE [Interacting]
     Indication: MAJOR DEPRESSION
     Route: 048
     Dates: start: 20110801
  13. LITHIUM [Concomitant]
     Indication: DEPRESSION
     Route: 048
     Dates: start: 200912
  14. KLONOPIN [Concomitant]
     Indication: ANXIETY
     Route: 048
     Dates: start: 200706
  15. ANTIDEPRESSANTS [Concomitant]

REACTIONS (15)
  - Drug interaction [Recovered/Resolved]
  - Overdose [Unknown]
  - Alcohol poisoning [Unknown]
  - Gait disturbance [Recovered/Resolved]
  - Feeling abnormal [Recovered/Resolved]
  - Serotonin syndrome [Recovered/Resolved]
  - Sedation [Recovered/Resolved]
  - Dysarthria [Recovered/Resolved]
  - Epilepsy [Unknown]
  - Convulsion [Unknown]
  - Withdrawal syndrome [Unknown]
  - Coordination abnormal [Unknown]
  - Hyperthermia malignant [Unknown]
  - Mental status changes [Unknown]
  - Neuroleptic malignant syndrome [Unknown]
